FAERS Safety Report 4461181-7 (Version None)
Quarter: 2004Q3

REPORT INFORMATION
  Report Type: 
  Country: None (occurrence: None)
  Receive Date: 20040923
  Receipt Date: 20040917
  Transmission Date: 20050211
  Serious: Yes (Death)
  Sender: FDA-Public Use
  Company Number: 2004227860US

PATIENT
  Age: 85 Year
  Sex: Female

DRUGS (3)
  1. CELEBREX [Suspect]
     Indication: ARTHRITIS
  2. ATENOLOL [Concomitant]
  3. ACE INHIBITOR [Concomitant]

REACTIONS (3)
  - ABDOMINAL DISTENSION [None]
  - CIRCULATORY COLLAPSE [None]
  - DYSPNOEA [None]
